FAERS Safety Report 5852014-2 (Version None)
Quarter: 2008Q3

REPORT INFORMATION
  Report Type: 
  Country: None (occurrence: None)
  Receive Date: 20080820
  Receipt Date: 20080812
  Transmission Date: 20090109
  Serious: Yes (Other)
  Sender: FDA-Public Use
  Company Number: US-PFIZER INC-2008067290

PATIENT
  Sex: Female
  Weight: 90.7 kg

DRUGS (6)
  1. LIPITOR [Suspect]
     Indication: BLOOD CHOLESTEROL INCREASED
  2. SYNTHROID [Concomitant]
  3. ALPRAZOLAM [Concomitant]
  4. LISINOPRIL [Concomitant]
  5. TOPROL-XL [Concomitant]
     Dosage: DAILY DOSE:100MG
  6. PLAVIX [Concomitant]

REACTIONS (14)
  - ABDOMINAL DISTENSION [None]
  - ACTIVITIES OF DAILY LIVING IMPAIRED [None]
  - DIARRHOEA [None]
  - FLUID RETENTION [None]
  - ILL-DEFINED DISORDER [None]
  - INFLAMMATION [None]
  - MUSCLE SPASMS [None]
  - MYALGIA [None]
  - PAIN [None]
  - PAIN IN EXTREMITY [None]
  - PARALYSIS [None]
  - RESTLESS LEGS SYNDROME [None]
  - VERTIGO [None]
  - WEIGHT INCREASED [None]
